FAERS Safety Report 24700531 (Version 3)
Quarter: 2024Q4

REPORT INFORMATION
  Report Type: Report from Study
  Country: KR (occurrence: KR)
  Receive Date: 20241205
  Receipt Date: 20241211
  Transmission Date: 20250115
  Serious: Yes (Hospitalization, Other)
  Sender: TAKEDA
  Company Number: KR-TAKEDA-2024TUS120451

PATIENT
  Age: 46 Year
  Sex: Male
  Weight: 96 kg

DRUGS (47)
  1. VEDOLIZUMAB [Suspect]
     Active Substance: VEDOLIZUMAB
     Indication: Crohn^s disease
     Dosage: 300 MILLIGRAM
  2. Duoclin [Concomitant]
     Dosage: 7.5 MILLILITER, BID
     Dates: start: 20240612, end: 20240617
  3. TREIN [Concomitant]
     Dosage: 10 MILLIGRAM, QD
     Dates: start: 20240612, end: 20240617
  4. MONTERIZINE [Concomitant]
     Dosage: UNK UNK, QD
     Dates: start: 20240612, end: 20240617
  5. SERTACONAZOLE NITRATE [Concomitant]
     Active Substance: SERTACONAZOLE NITRATE
     Dosage: 15 MILLIGRAM, BID
     Dates: start: 20240612, end: 20240617
  6. SERTACONAZOLE NITRATE [Concomitant]
     Active Substance: SERTACONAZOLE NITRATE
     Dosage: UNK
     Dates: start: 20240710, end: 20240710
  7. DESOWEN [Concomitant]
     Active Substance: DESONIDE
     Dosage: 120 MILLILITER
     Dates: start: 20240612, end: 20240623
  8. Feroba you sr [Concomitant]
     Dosage: UNK UNK, BID
     Dates: start: 20230208, end: 20240617
  9. Feroba you sr [Concomitant]
     Dosage: UNK, BID
     Dates: start: 20240620, end: 20240623
  10. Dong a perdipine [Concomitant]
     Dosage: 30 MILLIGRAM, QD
     Dates: start: 20240618, end: 20240619
  11. SMOFKABIVEN PERIPHERAL [Concomitant]
     Dosage: 1448 MILLILITER
     Dates: start: 20240618, end: 20240619
  12. SMOFKABIVEN PERIPHERAL [Concomitant]
     Dosage: 1448 MILLILITER
     Dates: start: 20240624, end: 20240627
  13. SMOFKABIVEN PERIPHERAL [Concomitant]
     Dosage: 1448 MILLILITER
     Dates: start: 20241128, end: 20241129
  14. PENIRAMIN [Concomitant]
     Dosage: UNK
     Dates: start: 20240618, end: 20240618
  15. HARMONILAN [Concomitant]
     Dosage: 200 MILLILITER, TID
     Dates: start: 20240619, end: 20240623
  16. DICAMAX D PLUS [Concomitant]
     Dosage: UNK UNK, QD
     Dates: start: 20240619, end: 20240623
  17. NEXIUM I.V. [Concomitant]
     Active Substance: ESOMEPRAZOLE SODIUM
     Dosage: UNK
     Dates: start: 20240619, end: 20240619
  18. Esomezol [Concomitant]
     Dosage: 20 MILLIGRAM, QD
     Dates: start: 20240619, end: 20240623
  19. PLENVU [Concomitant]
     Active Substance: ASCORBIC ACID\POLYETHYLENE GLYCOL 3350\POTASSIUM CHLORIDE\SODIUM ASCORBATE\SODIUM CHLORIDE\SODIUM SU
     Dosage: UNK
     Dates: start: 20240625, end: 20240625
  20. Bc fentanyl citrate [Concomitant]
     Dosage: 0.05 MILLIGRAM
     Dates: start: 20240626, end: 20240626
  21. MIDAZOLAM [Concomitant]
     Active Substance: MIDAZOLAM
     Dosage: 5 MILLIGRAM
     Dates: start: 20240626, end: 20240626
  22. PROPOFOL [Concomitant]
     Active Substance: PROPOFOL
     Dosage: 200 MILLIGRAM
     Dates: start: 20240626, end: 20240626
  23. PROPOFOL [Concomitant]
     Active Substance: PROPOFOL
     Dosage: 200 MILLIGRAM
     Dates: start: 20241129, end: 20241129
  24. ENDOCOL [Concomitant]
     Dosage: 30 MILLILITER
     Dates: start: 20240625, end: 20240625
  25. ENDOCOL [Concomitant]
     Dosage: 30 MILLILITER
     Dates: start: 20241128, end: 20241128
  26. BROPIUM [Concomitant]
     Dosage: 5 MILLIGRAM
     Dates: start: 20240626, end: 20240626
  27. TAMCETON [Concomitant]
     Dosage: 40 MILLIGRAM
     Dates: start: 20240710, end: 20240710
  28. BOLGRE [Concomitant]
     Dosage: UNK UNK, BID
     Dates: start: 20241113, end: 20241127
  29. BOLGRE [Concomitant]
     Dosage: UNK, BID
     Dates: start: 20240724, end: 20240820
  30. HUMIRA [Concomitant]
     Active Substance: ADALIMUMAB
     Dosage: 160 MILLIGRAM
     Dates: start: 20141121, end: 20141121
  31. HUMIRA [Concomitant]
     Active Substance: ADALIMUMAB
     Dosage: 80 MILLIGRAM
     Dates: start: 20141209, end: 20141209
  32. HUMIRA [Concomitant]
     Active Substance: ADALIMUMAB
     Dosage: 40 MILLIGRAM
     Dates: start: 20141223, end: 20170106
  33. INFLIXIMAB [Concomitant]
     Active Substance: INFLIXIMAB
     Dosage: 1000 MILLIGRAM
     Dates: start: 20170318, end: 20220914
  34. INFLIXIMAB [Concomitant]
     Active Substance: INFLIXIMAB
     Dosage: 120 MILLIGRAM, Q2WEEKS
     Dates: start: 20230111, end: 20230125
  35. STELARA [Concomitant]
     Active Substance: USTEKINUMAB
     Dosage: 520 MILLIGRAM
     Dates: start: 20230222, end: 20230222
  36. STELARA [Concomitant]
     Active Substance: USTEKINUMAB
     Dosage: 90 MILLIGRAM
     Dates: start: 20230419, end: 20230419
  37. STELARA [Concomitant]
     Active Substance: USTEKINUMAB
     Dosage: 90 MILLIGRAM
     Dates: start: 20230419, end: 20230419
  38. STELARA [Concomitant]
     Active Substance: USTEKINUMAB
     Dosage: 90 MILLIGRAM, Q3MONTHS
     Dates: start: 20230802, end: 20240313
  39. RINVOQ [Concomitant]
     Active Substance: UPADACITINIB
     Dosage: 30 MILLIGRAM, QD
     Dates: start: 20240508, end: 20240604
  40. RINVOQ [Concomitant]
     Active Substance: UPADACITINIB
     Dosage: 15 MILLIGRAM, QD
     Dates: start: 20240508, end: 20240604
  41. PREDNISOLONE [Concomitant]
     Active Substance: PREDNISOLONE
     Dosage: 30 MILLIGRAM, QD
     Dates: start: 20240619, end: 20240623
  42. METHOTREXATE [Concomitant]
     Active Substance: METHOTREXATE
     Dosage: 5 MILLIGRAM, 1/WEEK
     Dates: start: 20241013, end: 20241121
  43. OLIMEL E [Concomitant]
     Active Substance: AMINO ACIDS\DEXTROSE\ELECTROLYTES NOS\SOYBEAN OIL
     Dosage: 1 LITER
     Dates: start: 20241130, end: 20241130
  44. NEXIUM [Concomitant]
     Active Substance: ESOMEPRAZOLE MAGNESIUM
     Dosage: UNK
     Dates: start: 20241130, end: 20241130
  45. ALPIT [Concomitant]
     Dosage: 5 MILLIGRAM
     Dates: start: 20241129, end: 20241129
  46. Bukwang midazolam [Concomitant]
     Dosage: 9 MILLIGRAM
     Dates: start: 20241129, end: 20241129
  47. CORFORGE [Concomitant]

REACTIONS (1)
  - Crohn^s disease [Recovered/Resolved]

NARRATIVE: CASE EVENT DATE: 20241128
